FAERS Safety Report 10133759 (Version 4)
Quarter: 2014Q2

REPORT INFORMATION
  Report Type: Spontaneous
  Country: AU (occurrence: AU)
  Receive Date: 20140428
  Receipt Date: 20140509
  Transmission Date: 20141212
  Serious: Yes (Other)
  Sender: FDA-Public Use
  Company Number: AU-BAYER-2014-057463

PATIENT
  Sex: Female

DRUGS (1)
  1. CANESTEN CLOTRIMAZOLE THRUSH TREATMENT [Suspect]
     Indication: CANDIDA INFECTION
     Dosage: UNK
     Dates: start: 20140410

REACTIONS (2)
  - Vaginal haemorrhage [None]
  - Injury associated with device [None]
